FAERS Safety Report 10227811 (Version 1)
Quarter: 2014Q2

REPORT INFORMATION
  Report Type: Spontaneous
  Country: US (occurrence: US)
  Receive Date: 20140610
  Receipt Date: 20140610
  Transmission Date: 20141212
  Serious: No
  Sender: FDA-Public Use
  Company Number: US-BAYER-2014-086321

PATIENT
  Sex: Female

DRUGS (3)
  1. ALEVE CAPLET [Suspect]
     Indication: ARTHRITIS
     Dosage: 1-2 DF-BID
     Route: 048
  2. ALEVE CAPLET [Suspect]
     Indication: ARTHRITIS
     Dosage: 2 DF, QD
  3. ALEVE CAPLET [Suspect]
     Indication: ARTHRITIS
     Dosage: 1 DF, QD

REACTIONS (2)
  - Dizziness [Unknown]
  - Off label use [Unknown]
